FAERS Safety Report 8576058 (Version 3)
Quarter: 2012Q4

REPORT INFORMATION
  Report Type: 
  Country: JP (occurrence: JP)
  Receive Date: 20120523
  Receipt Date: 20121008
  Transmission Date: 20130627
  Serious: Yes (Hospitalization)
  Sender: FDA-Public Use
  Company Number: JP-GLAXOSMITHKLINE-B0802941A

PATIENT
  Age: 25 Year
  Sex: Female

DRUGS (5)
  1. LAMICTAL [Suspect]
     Indication: BIPOLAR II DISORDER
     Dosage: 50MG Per day
     Route: 048
     Dates: start: 201204, end: 20120508
  2. DOGMATYL [Concomitant]
     Indication: BIPOLAR I DISORDER
     Route: 048
     Dates: end: 20120508
  3. RIVOTRIL [Concomitant]
     Indication: BIPOLAR I DISORDER
     Route: 048
     Dates: end: 20120508
  4. CHINESE MEDICINE [Concomitant]
     Route: 048
     Dates: end: 20120507
  5. NITRAZEPAM [Concomitant]
     Indication: BIPOLAR I DISORDER
     Route: 048
     Dates: end: 20120508

REACTIONS (21)
  - Stevens-Johnson syndrome [Recovering/Resolving]
  - Lip swelling [Unknown]
  - Lip erosion [Unknown]
  - Erythema [Unknown]
  - Pyrexia [Unknown]
  - Rash [Recovering/Resolving]
  - Infection [Unknown]
  - Drug eruption [Unknown]
  - Ocular hyperaemia [Unknown]
  - Erythema of eyelid [Unknown]
  - Rash maculo-papular [Unknown]
  - Aspartate aminotransferase increased [Unknown]
  - Alanine aminotransferase increased [Unknown]
  - Blood lactate dehydrogenase increased [Unknown]
  - Blood alkaline phosphatase increased [Unknown]
  - Gamma-glutamyltransferase increased [Unknown]
  - Blood creatinine decreased [Unknown]
  - Blood albumin decreased [Unknown]
  - C-reactive protein increased [Unknown]
  - White blood cell count increased [Unknown]
  - Oral mucosa erosion [Unknown]
